FAERS Safety Report 17837040 (Version 1)
Quarter: 2020Q2

REPORT INFORMATION
  Report Type: Spontaneous
  Country: RO (occurrence: RO)
  Receive Date: 20200528
  Receipt Date: 20200528
  Transmission Date: 20200714
  Serious: Yes (Other)
  Sender: FDA-Public Use
  Company Number: RO-MYLANLABS-2020M1052107

PATIENT
  Age: 2 Month
  Sex: Female

DRUGS (1)
  1. AZACITIDINE. [Suspect]
     Active Substance: AZACITIDINE
     Indication: JUVENILE CHRONIC MYELOMONOCYTIC LEUKAEMIA
     Dosage: 8 CYCLES
     Route: 065

REACTIONS (3)
  - Toxicity to various agents [Recovered/Resolved]
  - Off label use [Recovered/Resolved]
  - Therapeutic product effective for unapproved indication [Recovered/Resolved]
